FAERS Safety Report 9519387 (Version 2)
Quarter: 2013Q3

REPORT INFORMATION
  Report Type: Spontaneous
  Country: IE (occurrence: IE)
  Receive Date: 20130912
  Receipt Date: 20130912
  Transmission Date: 20140515
  Serious: Yes (Other)
  Sender: FDA-Public Use
  Company Number: IE-GLAXOSMITHKLINE-B0915708A

PATIENT
  Age: 78 Year
  Sex: Male

DRUGS (5)
  1. FLUTICASONE PROPIONATE [Suspect]
     Indication: RHINITIS ALLERGIC
     Dosage: 200MCG PER DAY
     Route: 045
     Dates: start: 20130729
  2. PIRITON [Concomitant]
     Indication: CARDIOVASCULAR DISORDER
  3. ASPIRIN [Concomitant]
     Indication: CARDIOVASCULAR DISORDER
     Route: 048
  4. EMCOR [Concomitant]
     Indication: CARDIOVASCULAR DISORDER
     Route: 048
  5. CRESTOR [Concomitant]
     Indication: CARDIOVASCULAR DISORDER
     Route: 048

REACTIONS (2)
  - Vision blurred [Recovered/Resolved]
  - Diplopia [Recovered/Resolved]
